FAERS Safety Report 8955835 (Version 1)
Quarter: 2012Q4

REPORT INFORMATION
  Report Type: Report from Study
  Country: US (occurrence: US)
  Receive Date: 20121210
  Receipt Date: 20121210
  Transmission Date: 20130627
  Serious: Yes (Hospitalization)
  Sender: FDA-Public Use
  Company Number: US-PFIZER INC-2012306712

PATIENT
  Age: 51 Year
  Sex: Female
  Weight: 67.3 kg

DRUGS (10)
  1. MEDROL [Suspect]
     Dosage: UNK
     Dates: start: 20100410, end: 20100415
  2. VEMURAFENIB [Suspect]
     Indication: MALIGNANT MELANOMA
     Dosage: 960 mg, 2x/day
     Route: 048
     Dates: start: 20100330, end: 20100408
  3. VEMURAFENIB [Suspect]
     Dosage: to be received for one week, 480 mg, 2x/day
     Route: 048
     Dates: start: 20100422
  4. VEMURAFENIB [Suspect]
     Dosage: 720 mg, 2x/day
     Route: 048
  5. TYLENOL [Suspect]
     Dosage: UNK, PRN
     Dates: start: 20100408
  6. ALEVE [Suspect]
     Dosage: UNK, PRN
     Dates: start: 20100408
  7. BENICAR [Concomitant]
     Dosage: 40 mg, UNK
     Dates: start: 20080815
  8. LISINOPRIL [Concomitant]
     Dosage: 10 mg, UNK
     Dates: start: 20100317
  9. K-DUR [Concomitant]
     Dosage: 10 mEq, UNK
     Dates: start: 20100409, end: 20100418
  10. MACROBID [Concomitant]
     Dosage: 100 mg, UNK
     Dates: start: 20100409, end: 20100410

REACTIONS (1)
  - Gastrointestinal haemorrhage [Recovered/Resolved]
